FAERS Safety Report 4537417-0 (Version None)
Quarter: 2004Q4

REPORT INFORMATION
  Report Type: 
  Country: None (occurrence: None)
  Receive Date: 20041216
  Receipt Date: 20041005
  Transmission Date: 20050328
  Serious: Yes (Hospitalization, Other)
  Sender: FDA-Public Use
  Company Number: HQWYE690911OCT04

PATIENT
  Sex: Female

DRUGS (3)
  1. EFFEXOR XR [Suspect]
     Indication: LETHARGY
     Dosage: 150 MG 1X PER 1 DAY, ORAL
     Route: 048
  2. EFFEXOR XR [Suspect]
     Indication: PELVIC PAIN
     Dosage: 150 MG 1X PER 1 DAY, ORAL
     Route: 048
  3. ESCIN (ESCIN) [Concomitant]

REACTIONS (1)
  - PAIN [None]
